FAERS Safety Report 8553249-0 (Version None)
Quarter: 2012Q3

REPORT INFORMATION
  Report Type: 
  Country: None (occurrence: None)
  Receive Date: 20120731
  Receipt Date: 20120712
  Transmission Date: 20120928
  Serious: Yes (Hospitalization, Other)
  Sender: FDA-Public Use
  Company Number: DE-PFIZER INC-2012180171

PATIENT
  Sex: Male
  Weight: 108 kg

DRUGS (11)
  1. HYDROCHLOROTHIAZIDE/METOPROLOL [Concomitant]
     Indication: PRODUCT USED FOR UNKNOWN INDICATION
  2. RIVAROXABAN [Suspect]
     Indication: KNEE ARTHROPLASTY
  3. GABAPENTIN [Concomitant]
     Dosage: 300 MG, 3X/DAY
     Route: 048
  4. FERROUS SULFATE TAB [Concomitant]
     Indication: PRODUCT USED FOR UNKNOWN INDICATION
  5. AMLODIPINE [Concomitant]
     Dosage: 5 MG, 1X/DAY
     Route: 048
  6. LEVOTHYROXINE SODIUM [Concomitant]
     Dosage: 75 UG, 1X/DAY
     Route: 048
  7. NOVALGIN [Concomitant]
     Indication: PRODUCT USED FOR UNKNOWN INDICATION
     Dosage: 500 MG, 3X/DAY
  8. PANTOPRAZOLE [Concomitant]
     Indication: PRODUCT USED FOR UNKNOWN INDICATION
  9. RAMIPRIL [Concomitant]
     Dosage: 2.5 MG, 1X/DAY
  10. RIVAROXABAN [Suspect]
     Indication: THROMBOSIS PROPHYLAXIS
     Dosage: 10 MG DAILY
     Route: 048
     Dates: start: 20120502, end: 20120514
  11. IBUPROFEN [Concomitant]
     Dosage: UNK

REACTIONS (6)
  - RESTLESS LEGS SYNDROME [None]
  - HAEMARTHROSIS [None]
  - HYPERTENSION [None]
  - STATUS EPILEPTICUS [None]
  - PROTHROMBIN TIME PROLONGED [None]
  - ANAEMIA POSTOPERATIVE [None]
